FAERS Safety Report 4784011-2 (Version None)
Quarter: 2005Q3

REPORT INFORMATION
  Report Type: 
  Country: None (occurrence: None)
  Receive Date: 20050927
  Receipt Date: 20050819
  Transmission Date: 20060218
  Serious: No
  Sender: FDA-Public Use
  Company Number: SP00488

PATIENT
  Age: 31 Year
  Sex: Male
  Weight: 78.4723 kg

DRUGS (2)
  1. XIFAXAN [Suspect]
     Indication: OVERGROWTH BACTERIAL
     Dosage: 400MG/BID,ORAL
     Route: 048
     Dates: start: 20050810, end: 20050816
  2. ZOLOFT [Concomitant]

REACTIONS (1)
  - URTICARIA [None]
